FAERS Safety Report 19164308 (Version 3)
Quarter: 2021Q2

REPORT INFORMATION
  Report Type: Spontaneous
  Country: US (occurrence: US)
  Receive Date: 20210421
  Receipt Date: 20210603
  Transmission Date: 20210717
  Serious: Yes (Hospitalization)
  Sender: FDA-Public Use
  Company Number: US-PFIZER INC-2021337029

PATIENT
  Age: 72 Year
  Sex: Female

DRUGS (1)
  1. IBRANCE [Suspect]
     Active Substance: PALBOCICLIB
     Indication: BREAST CANCER FEMALE
     Dosage: 125 MG, CYCLIC (TAKE 1 TAB FOR 21 DAYS EVERY 28 DAY CYCLE)
     Route: 048
     Dates: start: 20210204, end: 202105

REACTIONS (3)
  - Asthenia [Unknown]
  - Diarrhoea [Unknown]
  - Dehydration [Unknown]
